FAERS Safety Report 4687142-0 (Version None)
Quarter: 2005Q2

REPORT INFORMATION
  Report Type: 
  Country: None (occurrence: None)
  Receive Date: 20050607
  Receipt Date: 20050519
  Transmission Date: 20051028
  Serious: Yes (Hospitalization, Other)
  Sender: FDA-Public Use
  Company Number: USA050598518

PATIENT
  Age: 91 Year
  Sex: Female

DRUGS (6)
  1. FORTEO [Suspect]
     Indication: OSTEOPOROSIS
     Dates: start: 20050301
  2. DIOVAN [Concomitant]
  3. NORVASC [Concomitant]
  4. FOLIC ACID [Concomitant]
  5. ZOCOR [Concomitant]
  6. LASIX [Concomitant]

REACTIONS (4)
  - MEMORY IMPAIRMENT [None]
  - MYOCARDIAL INFARCTION [None]
  - PHARMACEUTICAL PRODUCT COMPLAINT [None]
  - UNEVALUABLE EVENT [None]
